FAERS Safety Report 8613899-X (Version None)
Quarter: 2012Q3

REPORT INFORMATION
  Report Type: 
  Country: None (occurrence: None)
  Receive Date: 20120823
  Receipt Date: 20120810
  Transmission Date: 20120928
  Serious: Yes (Hospitalization)
  Sender: FDA-Public Use
  Company Number: BR-009507513-1208BRA005755

PATIENT

DRUGS (2)
  1. RIBAVIRIN [Suspect]
     Indication: HEPATITIS C
     Dosage: UNK, BID
     Route: 048
     Dates: start: 20120102, end: 20120725
  2. PEG-INTRON [Suspect]
     Indication: HEPATITIS C
     Dosage: UNK, QW
     Route: 058
     Dates: start: 20120102, end: 20120725

REACTIONS (7)
  - DECREASED APPETITE [None]
  - ASTHENIA [None]
  - ABDOMINAL DISTENSION [None]
  - PYREXIA [None]
  - WHITE BLOOD CELL COUNT DECREASED [None]
  - OEDEMA PERIPHERAL [None]
  - ANAEMIA [None]
